FAERS Safety Report 21303665 (Version 5)
Quarter: 2025Q3

REPORT INFORMATION
  Report Type: Report from Study
  Country: US (occurrence: US)
  Receive Date: 20220907
  Receipt Date: 20250808
  Transmission Date: 20251021
  Serious: Yes (Hospitalization)
  Sender: TAKEDA
  Company Number: US-TAKEDA-2022TUS062079

PATIENT
  Age: 77 Year
  Sex: Male
  Weight: 75 kg

DRUGS (13)
  1. LANADELUMAB [Suspect]
     Active Substance: LANADELUMAB
     Indication: Immune system disorder
     Dosage: 300 MILLIGRAM, Q2WEEKS
  2. LANADELUMAB [Suspect]
     Active Substance: LANADELUMAB
     Indication: Dermatitis atopic
  3. LANADELUMAB [Suspect]
     Active Substance: LANADELUMAB
  4. ICATIBANT [Concomitant]
     Active Substance: ICATIBANT ACETATE
  5. DUPIXENT [Concomitant]
     Active Substance: DUPILUMAB
  6. CLONIDINE [Concomitant]
     Active Substance: CLONIDINE
  7. AMLODIPINE BESYLATE [Concomitant]
     Active Substance: AMLODIPINE BESYLATE
  8. LEVOCETIRIZINE DIHYDROCHLORIDE [Concomitant]
     Active Substance: LEVOCETIRIZINE DIHYDROCHLORIDE
  9. NITROGLYCERIN [Concomitant]
     Active Substance: NITROGLYCERIN
  10. FAMOTIDINE [Concomitant]
     Active Substance: FAMOTIDINE
  11. DILTIAZEM [Concomitant]
     Active Substance: DILTIAZEM
  12. RYBELSUS [Concomitant]
     Active Substance: SEMAGLUTIDE
  13. EZETIMIBE [Concomitant]
     Active Substance: EZETIMIBE

REACTIONS (4)
  - Chest pain [Unknown]
  - COVID-19 [Unknown]
  - Injection site pain [Unknown]
  - Weight decreased [Unknown]

NARRATIVE: CASE EVENT DATE: 20220824
